FAERS Safety Report 21905700 (Version 1)
Quarter: 2023Q1

REPORT INFORMATION
  Report Type: Spontaneous
  Country: AU (occurrence: AU)
  Receive Date: 20230124
  Receipt Date: 20230124
  Transmission Date: 20230417
  Serious: Yes (Other)
  Sender: FDA-Public Use
  Company Number: AU-009507513-2301AUS008088

PATIENT
  Age: 85 Year
  Sex: Female

DRUGS (15)
  1. LAGEVRIO [Suspect]
     Active Substance: MOLNUPIRAVIR
     Dosage: DOSE: 800 MILLIGRAM , INTERVAL: 12 HOUR
     Route: 048
     Dates: start: 20220405, end: 20220406
  2. AMLODIPINE [Suspect]
     Active Substance: AMLODIPINE BESYLATE
     Dosage: DOSE: 10 MILLIGRAM , INTERVAL: 24 HOUR
     Route: 048
     Dates: start: 20220405, end: 20220406
  3. FUROSEMIDE [Suspect]
     Active Substance: FUROSEMIDE
     Dosage: DOSE: 40 MILLIGRAM , INTERVAL: 24 HOUR
     Route: 048
     Dates: start: 20220405, end: 20220406
  4. PREGABALIN [Suspect]
     Active Substance: PREGABALIN
     Dosage: DOSE: 75 MILLIGRAM , INTERVAL: 24 HOUR
     Route: 048
     Dates: start: 20220405, end: 20220406
  5. TELMISARTAN [Suspect]
     Active Substance: TELMISARTAN
     Dosage: DOSE: 80 MILLIGRAM , INTERVAL: 24 HOUR
     Route: 048
     Dates: start: 20220405, end: 20220406
  6. CHLORAMPHENICOL [Concomitant]
     Active Substance: CHLORAMPHENICOL
     Dosage: INTERVAL: 6 HOUR , DOSE FORM: EYE OINTMENT
     Route: 047
     Dates: start: 20220405, end: 20220406
  7. CHLORVESCENT [POTASSIUM CHLORIDE] [Concomitant]
     Dosage: UNK
     Route: 048
     Dates: start: 20220405, end: 20220405
  8. DEXAMETHASONE [Concomitant]
     Active Substance: DEXAMETHASONE
     Dosage: 6 MILLIGRAM, QD
     Dates: start: 20220404, end: 20220406
  9. ENOXAPARIN [Concomitant]
     Active Substance: ENOXAPARIN
     Dosage: DOSE: 40 MILLIGRAM , INTERVAL: 24 HOUR
     Route: 058
     Dates: start: 20220405
  10. METHENAMINE HIPPURATE [Concomitant]
     Active Substance: METHENAMINE HIPPURATE
     Dosage: DOSE: 1 GRAM , INTERVAL: 12 HOUR
     Route: 048
  11. PANTOPRAZOLE [Concomitant]
     Active Substance: PANTOPRAZOLE
     Dosage: DOSE: 40 MILLIGRAM , INTERVAL: 24 HOUR
     Route: 048
     Dates: start: 20220405
  12. PANTOPRAZOLE [Concomitant]
     Active Substance: PANTOPRAZOLE
     Dosage: DOSE: 40 MILLIGRAM , INTERVAL: 24 HOUR
     Route: 048
     Dates: start: 20220405
  13. LANOLIN\PARAFFIN [Concomitant]
     Active Substance: LANOLIN\PARAFFIN
     Dosage: INTERVAL: 6 HOUR
     Route: 047
  14. PRAMIPEXOLE DIHYDROCHLORIDE [Concomitant]
     Active Substance: PRAMIPEXOLE DIHYDROCHLORIDE
     Dosage: 0.125 MILLIGRAM, QD
     Route: 048
     Dates: start: 20220405
  15. PULMICORT TURBUHALER [Concomitant]
     Active Substance: BUDESONIDE
     Dosage: DOSE: 800 MICROGRAM , INTERVAL: 12 HOUR
     Dates: start: 20220405, end: 20220405

REACTIONS (1)
  - Syncope [Recovered/Resolved]

NARRATIVE: CASE EVENT DATE: 20220405
